FAERS Safety Report 23830066 (Version 2)
Quarter: 2024Q2

REPORT INFORMATION
  Report Type: Report from Study
  Country: IQ (occurrence: IQ)
  Receive Date: 20240508
  Receipt Date: 20240524
  Transmission Date: 20240716
  Serious: Yes (Hospitalization, Other)
  Sender: FDA-Public Use
  Company Number: IQ-BAYER-2024A066684

PATIENT
  Age: 63 Year
  Sex: Female

DRUGS (1)
  1. EYLEA [Suspect]
     Active Substance: AFLIBERCEPT
     Indication: Diabetic retinal oedema
     Dosage: INJECT,MONTHLY (STILL GOING MORE THAN 45 DOSES) ,SOLUTION FOR INJECTION, 40MG/ML
     Dates: start: 201701, end: 20240503

REACTIONS (3)
  - Retinal detachment [Recovered/Resolved]
  - Infection [Recovering/Resolving]
  - Pain [Recovered/Resolved]
